FAERS Safety Report 9855232 (Version 1)
Quarter: 2014Q1

REPORT INFORMATION
  Report Type: Spontaneous
  Country: IN (occurrence: None)
  Receive Date: 20140127
  Receipt Date: 20140127
  Transmission Date: 20141002
  Serious: Yes (Hospitalization, Other)
  Sender: FDA-Public Use
  Company Number: 2014IN00068

PATIENT
  Age: 11 Month
  Sex: Male

DRUGS (1)
  1. AMLOPIDINE [Suspect]
     Dosage: 12.5 TIMES THE MAXIMUM THERAPEUTIC DOSE

REACTIONS (7)
  - Toxicity to various agents [None]
  - Shock [None]
  - Wrong drug administered [None]
  - Vomiting [None]
  - Lethargy [None]
  - Dyspnoea [None]
  - Heart sounds abnormal [None]
